FAERS Safety Report 8450045-X (Version None)
Quarter: 2012Q2

REPORT INFORMATION
  Report Type: 
  Country: None (occurrence: None)
  Receive Date: 20120614
  Receipt Date: 20120614
  Transmission Date: 20120825
  Serious: Yes (Other)
  Sender: FDA-Public Use
  Company Number: None

PATIENT
  Age: 64 Year
  Weight: 72.5755 kg

DRUGS (2)
  1. LEVETIRACETAM [Suspect]
     Indication: STIFF PERSON SYNDROME
     Dosage: 3000 MG -500 MG TABLET- 2 TABLETS 3X/DAY PO
     Route: 048
     Dates: start: 20120421, end: 20120513
  2. LEVETIRACETAM [Suspect]
     Indication: MUSCLE SPASMS
     Dosage: 3000 MG -500 MG TABLET- 2 TABLETS 3X/DAY PO
     Route: 048
     Dates: start: 20120421, end: 20120513

REACTIONS (8)
  - ARTHRALGIA [None]
  - MUSCLE SPASMS [None]
  - INFLAMMATION [None]
  - REACTION TO COLOURING [None]
  - SWELLING [None]
  - INSOMNIA [None]
  - PRODUCT QUALITY ISSUE [None]
  - NEURALGIA [None]
